FAERS Safety Report 8890597 (Version 2)
Quarter: 2012Q4

REPORT INFORMATION
  Report Type: 
  Country: US (occurrence: US)
  Receive Date: 20121107
  Receipt Date: 20121227
  Transmission Date: 20130627
  Serious: No
  Sender: FDA-Public Use
  Company Number: US-ASTRAZENECA-2012SE81356

PATIENT
  Age: 59 Year
  Sex: Female
  Weight: 93.9 kg

DRUGS (12)
  1. METOPROLOL TARTRATE [Suspect]
     Route: 048
  2. CRESTOR [Suspect]
     Route: 048
  3. NEXIUM [Suspect]
     Route: 048
  4. ASPIRIN [Concomitant]
  5. NITROSTAT [Concomitant]
     Indication: CHEST PAIN
  6. ALBUTEROL SULFATE HFA [Concomitant]
  7. ENALAPRIL MALEATE [Concomitant]
  8. METFORMIN [Concomitant]
  9. PLAVIX [Concomitant]
  10. PREVACID [Concomitant]
  11. AZITHROMYCIN [Concomitant]
  12. ALLEGRA [Concomitant]

REACTIONS (4)
  - Type 2 diabetes mellitus [Unknown]
  - Hypertension [Unknown]
  - Nasopharyngitis [Unknown]
  - Cardiac disorder [Unknown]
